FAERS Safety Report 21396850 (Version 1)
Quarter: 2022Q3

REPORT INFORMATION
  Report Type: Spontaneous
  Country: GB (occurrence: GB)
  Receive Date: 20220930
  Receipt Date: 20220930
  Transmission Date: 20221027
  Serious: Yes (Other)
  Sender: FDA-Public Use
  Company Number: GB-PFIZER INC-PV202200067520

PATIENT
  Sex: Male

DRUGS (2)
  1. CYTARABINE [Suspect]
     Active Substance: CYTARABINE
     Indication: Myelodysplastic syndrome
     Dosage: 1.5 MG/KG, 1X/DAY, A 7-DAY COURSE, LOW-DOSE
  2. CYTARABINE [Suspect]
     Active Substance: CYTARABINE
     Dosage: LOW-DOSE

REACTIONS (1)
  - Necrotising enterocolitis neonatal [Recovered/Resolved]
